FAERS Safety Report 13666683 (Version 1)
Quarter: 2017Q2

REPORT INFORMATION
  Report Type: Spontaneous
  Country: US (occurrence: US)
  Receive Date: 20170619
  Receipt Date: 20170619
  Transmission Date: 20170830
  Serious: No
  Sender: FDA-Public Use
  Company Number: US-ROCHE-1527229

PATIENT
  Sex: Female
  Weight: 59.47 kg

DRUGS (1)
  1. XELODA [Suspect]
     Active Substance: CAPECITABINE
     Indication: BREAST CANCER
     Dosage: 7 DAYS ON, 7 DAYS OFF
     Route: 048
     Dates: start: 20140225

REACTIONS (1)
  - Disease progression [Unknown]
